FAERS Safety Report 10178934 (Version 1)
Quarter: 2014Q2

REPORT INFORMATION
  Report Type: Spontaneous
  Country: US (occurrence: US)
  Receive Date: 20140519
  Receipt Date: 20140519
  Transmission Date: 20141212
  Serious: No
  Sender: FDA-Public Use
  Company Number: US-BIOGENIDEC-2014BI040873

PATIENT
  Age: 73 Year
  Sex: Female

DRUGS (11)
  1. TECFIDERA [Suspect]
     Indication: MULTIPLE SCLEROSIS
     Route: 048
  2. 4-AMINOPYRIDINE [Concomitant]
  3. CIPRO [Concomitant]
  4. CITALOPRAM HYDROBROMIDE [Concomitant]
  5. LORAZEPAM [Concomitant]
  6. MECLIZINE HCL [Concomitant]
  7. METAXALONE [Concomitant]
  8. SIMVASTATIN [Concomitant]
  9. TRAMADOL-ACETAMINOPHEN [Concomitant]
  10. ZOLPIDEM TARTRATE [Concomitant]
  11. MYRBETRIQ [Concomitant]

REACTIONS (1)
  - Tooth infection [Unknown]
